FAERS Safety Report 20832809 (Version 1)
Quarter: 2022Q2

REPORT INFORMATION
  Report Type: 
  Country: None (occurrence: None)
  Receive Date: 20220516
  Receipt Date: 20220516
  Transmission Date: 20220721
  Serious: No
  Sender: FDA-Public Use
  Company Number: US-ROCHE-3093896

PATIENT

DRUGS (4)
  1. BEVACIZUMAB [Suspect]
     Active Substance: BEVACIZUMAB
     Dosage: OVER 30-90 MIN ON DAY 1?LAST ADMINISTRATION OF DOSE:03/NOV/2009
     Dates: start: 20090713
  2. PACLITAXEL [Suspect]
     Active Substance: PACLITAXEL
     Dosage: OVER 3HRS ON DAY1
     Dates: start: 20090713
  3. DOCETAXEL [Suspect]
     Active Substance: DOCETAXEL
     Dosage: OVER 1 HRS ON DAY1
     Dates: start: 20090713
  4. CARBOPLATIN [Suspect]
     Active Substance: CARBOPLATIN
     Dosage: AUC5I OVER 30 MIN ON DAY 1
     Dates: start: 20090713

REACTIONS (3)
  - Anaemia [None]
  - Gastric ulcer [None]
  - Syncope [None]

NARRATIVE: CASE EVENT DATE: 20091111
